FAERS Safety Report 4375717-8 (Version None)
Quarter: 2004Q2

REPORT INFORMATION
  Report Type: 
  Country: None (occurrence: None)
  Receive Date: 20040607
  Receipt Date: 20040602
  Transmission Date: 20050107
  Serious: Yes (Death)
  Sender: FDA-Public Use
  Company Number: 2004-116608-NL

PATIENT
  Age: 49 Year
  Sex: Male

DRUGS (5)
  1. MIRTAZAPINE [Suspect]
     Indication: DEPRESSION
     Dosage: 15 MG QD ORAL
     Route: 048
     Dates: start: 20040223, end: 20040305
  2. DIAZEPAM [Concomitant]
  3. SIMVASTATIN [Concomitant]
  4. VENLAFAXINE [Concomitant]
  5. ZOPICLONE [Concomitant]

REACTIONS (2)
  - HALLUCINATION, VISUAL [None]
  - POISONING DELIBERATE [None]
